FAERS Safety Report 14010460 (Version 4)
Quarter: 2018Q1

REPORT INFORMATION
  Report Type: Report from Study
  Country: US (occurrence: US)
  Receive Date: 20170926
  Receipt Date: 20180316
  Transmission Date: 20180508
  Serious: No
  Sender: FDA-Public Use
  Company Number: PHEH2017US030612

PATIENT
  Sex: Female

DRUGS (1)
  1. COSENTYX [Suspect]
     Active Substance: SECUKINUMAB
     Indication: PSORIASIS
     Dosage: 300 MG, QW
     Route: 058

REACTIONS (7)
  - Nasopharyngitis [Unknown]
  - Irritability [Unknown]
  - Peripheral swelling [Unknown]
  - Hypersensitivity [Unknown]
  - Psoriasis [Not Recovered/Not Resolved]
  - Pruritus [Unknown]
  - Therapeutic response decreased [Unknown]
